FAERS Safety Report 14235515 (Version 2)
Quarter: 2017Q4

REPORT INFORMATION
  Report Type: Spontaneous
  Country: CA (occurrence: CA)
  Receive Date: 20171129
  Receipt Date: 20171205
  Transmission Date: 20180321
  Serious: Yes (Hospitalization, Other)
  Sender: FDA-Public Use
  Company Number: CA-B.I. PHARMACEUTICALS,INC./RIDGEFIELD-2017-BI-062809

PATIENT
  Age: 61 Year
  Sex: Male

DRUGS (2)
  1. JARDIANCE [Suspect]
     Active Substance: EMPAGLIFLOZIN
     Indication: TYPE 2 DIABETES MELLITUS
     Route: 065
     Dates: end: 201710
  2. JARDIANCE [Suspect]
     Active Substance: EMPAGLIFLOZIN
     Indication: DIABETIC NEUROPATHY

REACTIONS (15)
  - Heart rate increased [Unknown]
  - Heart rate irregular [Unknown]
  - Heart rate irregular [Unknown]
  - Diarrhoea [Unknown]
  - Pain [Unknown]
  - Arrhythmia [Unknown]
  - Intracardiac thrombus [Unknown]
  - Influenza like illness [Unknown]
  - Dehydration [Unknown]
  - Blood magnesium decreased [Unknown]
  - Vomiting [Unknown]
  - Vomiting [Unknown]
  - Diabetic ketoacidosis [Not Recovered/Not Resolved]
  - Abdominal pain upper [Unknown]
  - Blood potassium decreased [Unknown]

NARRATIVE: CASE EVENT DATE: 20171016
